FAERS Safety Report 14949940 (Version 1)
Quarter: 2018Q2

REPORT INFORMATION
  Report Type: Other
  Country: FR (occurrence: FR)
  Receive Date: 20180530
  Receipt Date: 20180530
  Transmission Date: 20180711
  Serious: Yes (Hospitalization, Other)
  Sender: FDA-Public Use
  Company Number: FR-MACLEODS PHARMACEUTICALS US LTD-MAC2018013365

PATIENT

DRUGS (6)
  1. ETHAMBUTOL [Suspect]
     Active Substance: ETHAMBUTOL HYDROCHLORIDE
     Indication: TUBERCULOSIS OF CENTRAL NERVOUS SYSTEM
     Dosage: UNK, NOT SPECIFIED
     Route: 048
     Dates: start: 20180330, end: 20180424
  2. RIFAMPICIN [Suspect]
     Active Substance: RIFAMPIN
     Indication: TUBERCULOSIS OF CENTRAL NERVOUS SYSTEM
     Dosage: UNK, NOT SPECIFIED
     Route: 048
     Dates: start: 20180330, end: 20180424
  3. LOVENOX [Suspect]
     Active Substance: ENOXAPARIN SODIUM
     Indication: THROMBOSIS PROPHYLAXIS
     Dosage: UNK
     Route: 058
     Dates: start: 20180329, end: 20180424
  4. PANTOPRAZOLE [Suspect]
     Active Substance: PANTOPRAZOLE
     Indication: GASTROOESOPHAGEAL REFLUX DISEASE
     Dosage: UNK
     Route: 048
     Dates: start: 20180407, end: 20180424
  5. PYRAZINAMIDE. [Suspect]
     Active Substance: PYRAZINAMIDE
     Indication: TUBERCULOSIS OF CENTRAL NERVOUS SYSTEM
     Dosage: UNK, NOT SPECIFIED
     Route: 048
     Dates: start: 20180330, end: 20180424
  6. ISONIAZID. [Suspect]
     Active Substance: ISONIAZID
     Indication: TUBERCULOSIS OF CENTRAL NERVOUS SYSTEM
     Dosage: UNK, NOT SPECIFIED
     Route: 048
     Dates: start: 20180330, end: 20180424

REACTIONS (5)
  - Cholestasis [Not Recovered/Not Resolved]
  - Hypertransaminasaemia [Not Recovered/Not Resolved]
  - Gamma-glutamyltransferase increased [Not Recovered/Not Resolved]
  - Pyrexia [Not Recovered/Not Resolved]
  - Blood alkaline phosphatase increased [Not Recovered/Not Resolved]

NARRATIVE: CASE EVENT DATE: 20180409
